FAERS Safety Report 5418137-7 (Version None)
Quarter: 2007Q3

REPORT INFORMATION
  Report Type: 
  Country: None (occurrence: None)
  Receive Date: 20070815
  Receipt Date: 20070731
  Transmission Date: 20080115
  Serious: Yes (Hospitalization)
  Sender: FDA-Public Use
  Company Number: 2007001287

PATIENT
  Age: 43 Year
  Sex: Female

DRUGS (6)
  1. CISPLATIN [Suspect]
     Indication: SQUAMOUS CELL CARCINOMA
  2. ACTOS [Concomitant]
  3. TRAZODONE HCL [Concomitant]
  4. PROTONIX [Concomitant]
  5. REGLAN [Concomitant]
  6. COLACE (DOCUSATE SODIUM) [Concomitant]

REACTIONS (3)
  - CATHETER RELATED COMPLICATION [None]
  - DEVICE MIGRATION [None]
  - PERITONITIS [None]
